FAERS Safety Report 10050376 (Version 2)
Quarter: 2014Q2

REPORT INFORMATION
  Report Type: Report from Study
  Country: AU (occurrence: AU)
  Receive Date: 20140401
  Receipt Date: 20140417
  Transmission Date: 20141212
  Serious: Yes (Hospitalization, Other)
  Sender: FDA-Public Use
  Company Number: AU-BRISTOL-MYERS SQUIBB COMPANY-20560454

PATIENT
  Age: 60 Year
  Sex: Female

DRUGS (4)
  1. ORENCIA [Suspect]
     Indication: RHEUMATOID ARTHRITIS
     Route: 042
     Dates: start: 20071126
  2. METHOTREXATE [Concomitant]
  3. FOLIC ACID [Concomitant]
  4. MOBIC [Concomitant]

REACTIONS (4)
  - Diverticulitis [Unknown]
  - Uterine polyp [Unknown]
  - Dysuria [Recovered/Resolved]
  - Basal cell carcinoma [Unknown]
